FAERS Safety Report 10882331 (Version 1)
Quarter: 2015Q1

REPORT INFORMATION
  Report Type: Spontaneous
  Country: CH (occurrence: CH)
  Receive Date: 20150303
  Receipt Date: 20150303
  Transmission Date: 20150721
  Serious: Yes (Life-Threatening, Hospitalization, Other)
  Sender: FDA-Public Use
  Company Number: CH-B.I. PHARMACEUTICALS,INC./RIDGEFIELD-2015-BI-10057SI

PATIENT
  Age: 47 Year
  Sex: Female

DRUGS (12)
  1. CALCIMAGON [Concomitant]
     Active Substance: CALCIUM
     Indication: BLOOD POTASSIUM DECREASED
     Dosage: 1000 MG
     Route: 048
     Dates: start: 20150217
  2. PRIMPERAN [Suspect]
     Active Substance: METOCLOPRAMIDE HYDROCHLORIDE
     Dosage: 10 MG
     Route: 042
     Dates: start: 20150218
  3. KALIUM HAUSMANN EFFERVETTES [Concomitant]
     Indication: BLOOD POTASSIUM DECREASED
     Dosage: DAILY DOSE: 30 MMOL
     Route: 048
     Dates: start: 20150217
  4. DAFALGAN [Concomitant]
     Active Substance: ACETAMINOPHEN
     Indication: PRODUCT USED FOR UNKNOWN INDICATION
     Dosage: 1 G
     Route: 048
     Dates: start: 20150217
  5. MAGNESIOCARD [Concomitant]
     Active Substance: MAGNESIUM ASPARTATE HYDROCHLORIDE
     Indication: PRODUCT USED FOR UNKNOWN INDICATION
     Dosage: FORMULATION: COATED TABLETS, FILM AND DAILY DOSE: 5 MMOL
     Route: 048
     Dates: start: 20150217
  6. CATAPRESAN [Suspect]
     Active Substance: CLONIDINE
     Indication: PROPHYLAXIS AGAINST ALCOHOLIC WITHDRAWAL SYNDROME
     Dosage: 0.6 MG
     Route: 048
     Dates: start: 20150217
  7. TOREM [Suspect]
     Active Substance: TORSEMIDE
     Indication: PRODUCT USED FOR UNKNOWN INDICATION
     Dosage: 10 MG
     Route: 048
     Dates: start: 20150217
  8. METHADONE [Suspect]
     Active Substance: METHADONE HYDROCHLORIDE
     Indication: DRUG DEPENDENCE
     Dosage: 85 MG
     Route: 048
     Dates: start: 2006
  9. POTASSIUM [Concomitant]
     Active Substance: POTASSIUM
     Indication: BLOOD POTASSIUM DECREASED
     Dosage: DAILY DOSE: 30 MMOL
     Route: 042
     Dates: start: 20150217
  10. SERESTA [Concomitant]
     Active Substance: OXAZEPAM
     Indication: PROPHYLAXIS AGAINST ALCOHOLIC WITHDRAWAL SYNDROME
     Dosage: 120 MG
     Route: 048
  11. PRIMPERAN [Suspect]
     Active Substance: METOCLOPRAMIDE HYDROCHLORIDE
     Indication: NAUSEA
     Dosage: 10 MG
     Route: 048
     Dates: start: 20150218
  12. KONAKION [Concomitant]
     Active Substance: PHYTONADIONE
     Indication: PRODUCT USED FOR UNKNOWN INDICATION
     Dosage: 20 MG
     Route: 065
     Dates: start: 20150218

REACTIONS (5)
  - Syncope [Recovered/Resolved]
  - Resuscitation [Recovered/Resolved]
  - Cardiac pacemaker insertion [Not Recovered/Not Resolved]
  - Torsade de pointes [Not Recovered/Not Resolved]
  - Electrocardiogram QT prolonged [Not Recovered/Not Resolved]

NARRATIVE: CASE EVENT DATE: 20150218
